FAERS Safety Report 14091143 (Version 1)
Quarter: 2017Q4

REPORT INFORMATION
  Report Type: Report from Study
  Country: ES (occurrence: ES)
  Receive Date: 20171016
  Receipt Date: 20171016
  Transmission Date: 20180321
  Serious: Yes (Hospitalization)
  Sender: FDA-Public Use
  Company Number: ES-TEVA-816604ACC

PATIENT
  Age: 63 Year
  Sex: Female

DRUGS (31)
  1. DEXAMETHASONE. [Suspect]
     Active Substance: DEXAMETHASONE
     Dosage: (CYCLE 4)
     Route: 065
     Dates: start: 201505
  2. BENDAMUSTINE HYDROCHLORIDE. [Suspect]
     Active Substance: BENDAMUSTINE HYDROCHLORIDE
     Dosage: (CYCLE 7)
     Route: 042
     Dates: start: 201508
  3. VELCADE [Suspect]
     Active Substance: BORTEZOMIB
     Indication: PLASMA CELL MYELOMA
     Dosage: (CYCLE 1)
     Route: 065
     Dates: start: 201502
  4. VELCADE [Suspect]
     Active Substance: BORTEZOMIB
     Route: 065
     Dates: start: 201510
  5. VELCADE [Suspect]
     Active Substance: BORTEZOMIB
     Dosage: (CYCLE 10)
     Route: 065
  6. DEXAMETHASONE. [Suspect]
     Active Substance: DEXAMETHASONE
     Indication: PLASMA CELL MYELOMA
     Dosage: (CYCLE 1)
     Route: 065
     Dates: start: 201502
  7. DEXAMETHASONE. [Suspect]
     Active Substance: DEXAMETHASONE
     Dosage: (CYCLE 5)
     Route: 065
     Dates: start: 201506
  8. DEXAMETHASONE. [Suspect]
     Active Substance: DEXAMETHASONE
     Dosage: (CYCLE 6)
     Route: 065
     Dates: start: 201507
  9. DEXAMETHASONE. [Suspect]
     Active Substance: DEXAMETHASONE
     Dosage: (CYCLE 7)
     Route: 065
     Dates: start: 201508
  10. BENDAMUSTINE HYDROCHLORIDE. [Suspect]
     Active Substance: BENDAMUSTINE HYDROCHLORIDE
     Dosage: (CYCLE 4)
     Route: 042
     Dates: start: 201505
  11. VELCADE [Suspect]
     Active Substance: BORTEZOMIB
     Dosage: (CYCLE 5)
     Route: 065
     Dates: start: 201506
  12. DEXAMETHASONE. [Suspect]
     Active Substance: DEXAMETHASONE
     Dosage: (CYCLE 3)
     Route: 065
     Dates: start: 201504
  13. BENDAMUSTINE HYDROCHLORIDE. [Suspect]
     Active Substance: BENDAMUSTINE HYDROCHLORIDE
     Dosage: (CYCLE 10)
     Route: 042
  14. VELCADE [Suspect]
     Active Substance: BORTEZOMIB
     Dosage: (CYCLE 2)
     Route: 065
     Dates: start: 201503
  15. VELCADE [Suspect]
     Active Substance: BORTEZOMIB
     Dosage: (CYCLE 7)
     Route: 065
     Dates: start: 201508
  16. DEXAMETHASONE. [Suspect]
     Active Substance: DEXAMETHASONE
     Dosage: (CYCLE 2)
     Route: 065
     Dates: start: 201503
  17. DEXAMETHASONE. [Suspect]
     Active Substance: DEXAMETHASONE
     Dosage: (CYCLE 8)
     Route: 065
     Dates: start: 201509
  18. VELCADE [Suspect]
     Active Substance: BORTEZOMIB
     Dosage: (CYCLE 4)
     Route: 065
     Dates: start: 201505
  19. BENDAMUSTINE HYDROCHLORIDE. [Suspect]
     Active Substance: BENDAMUSTINE HYDROCHLORIDE
     Dosage: (CYCLE 5)
     Route: 042
     Dates: start: 201506
  20. BENDAMUSTINE HYDROCHLORIDE. [Suspect]
     Active Substance: BENDAMUSTINE HYDROCHLORIDE
     Dosage: (CYCLE 6)
     Route: 042
     Dates: start: 201507
  21. BENDAMUSTINE HYDROCHLORIDE. [Suspect]
     Active Substance: BENDAMUSTINE HYDROCHLORIDE
     Dosage: (CYCLE 8)
     Route: 042
     Dates: start: 201509
  22. DEXAMETHASONE. [Suspect]
     Active Substance: DEXAMETHASONE
     Route: 065
     Dates: start: 201510
  23. BENDAMUSTINE HYDROCHLORIDE. [Suspect]
     Active Substance: BENDAMUSTINE HYDROCHLORIDE
     Indication: PLASMA CELL MYELOMA
     Dosage: (CYCLE 1)
     Route: 042
     Dates: start: 201502
  24. ACICLOVIR [Concomitant]
     Active Substance: ACYCLOVIR
     Indication: PRODUCT USED FOR UNKNOWN INDICATION
     Route: 065
  25. BENDAMUSTINE HYDROCHLORIDE. [Suspect]
     Active Substance: BENDAMUSTINE HYDROCHLORIDE
     Dosage: (CYCLE 2)
     Route: 042
     Dates: start: 201503
  26. BENDAMUSTINE HYDROCHLORIDE. [Suspect]
     Active Substance: BENDAMUSTINE HYDROCHLORIDE
     Dosage: (CYCLE 3)
     Route: 042
     Dates: start: 201504
  27. BENDAMUSTINE HYDROCHLORIDE. [Suspect]
     Active Substance: BENDAMUSTINE HYDROCHLORIDE
     Route: 042
     Dates: start: 201510
  28. VELCADE [Suspect]
     Active Substance: BORTEZOMIB
     Dosage: (CYCLE 3)
     Route: 065
     Dates: start: 201504
  29. VELCADE [Suspect]
     Active Substance: BORTEZOMIB
     Dosage: (CYCLE 6)
     Route: 065
     Dates: start: 201507
  30. VELCADE [Suspect]
     Active Substance: BORTEZOMIB
     Dosage: (CYCLE 8)
     Route: 065
     Dates: start: 201509
  31. DEXAMETHASONE. [Suspect]
     Active Substance: DEXAMETHASONE
     Dosage: (CYCLE 10)
     Route: 065

REACTIONS (8)
  - Diarrhoea [Recovered/Resolved]
  - Pneumonia [Recovered/Resolved]
  - Urinary tract infection [Unknown]
  - Neuropathy peripheral [Recovering/Resolving]
  - Off label use [Unknown]
  - Neutropenia [Recovered/Resolved]
  - Nausea [Recovered/Resolved]
  - Upper respiratory tract infection [Recovered/Resolved]

NARRATIVE: CASE EVENT DATE: 201502
